FAERS Safety Report 13795108 (Version 1)
Quarter: 2017Q3

REPORT INFORMATION
  Report Type: Report from Study
  Country: NL (occurrence: NL)
  Receive Date: 20170726
  Receipt Date: 20170726
  Transmission Date: 20171127
  Serious: Yes (Hospitalization, Other)
  Sender: FDA-Public Use
  Company Number: NL-ASTRAZENECA-2017SE75939

PATIENT
  Age: 52 Year
  Sex: Male

DRUGS (10)
  1. EZETROL [Concomitant]
     Active Substance: EZETIMIBE
     Dosage: 10 MG
  2. ATORVASTATIN [Concomitant]
     Active Substance: ATORVASTATIN
     Dosage: 40 MG
  3. CLOPIDOGREL [Suspect]
     Active Substance: CLOPIDOGREL BISULFATE
     Indication: CORONARY ARTERY DISEASE
     Route: 048
     Dates: start: 20150409
  4. METOPROLOL. [Concomitant]
     Active Substance: METOPROLOL
  5. PANTOZOL [Concomitant]
     Active Substance: PANTOPRAZOLE SODIUM
     Dosage: 40 MG
  6. COSOPT OOGDRUP [Concomitant]
  7. ACETYLSALICYLIC ACID [Suspect]
     Active Substance: ASPIRIN
     Indication: ACUTE CORONARY SYNDROME
     Dosage: NON-AZ PRODUCT, 80 MG
     Route: 048
  8. LISINOPRIL. [Concomitant]
     Active Substance: LISINOPRIL
     Dosage: 20 MG
  9. TICAGRELOR. [Suspect]
     Active Substance: TICAGRELOR
     Indication: ACUTE CORONARY SYNDROME
     Route: 048
     Dates: start: 20150408, end: 20150409
  10. NTG [Concomitant]
     Active Substance: NITROGLYCERIN

REACTIONS (3)
  - Coronary artery stenosis [Recovered/Resolved]
  - Acute myocardial infarction [Recovered/Resolved]
  - Vascular stent restenosis [Recovered/Resolved]

NARRATIVE: CASE EVENT DATE: 20160123
